FAERS Safety Report 6829979-5 (Version None)
Quarter: 2010Q3

REPORT INFORMATION
  Report Type: 
  Country: None (occurrence: None)
  Receive Date: 20100711
  Receipt Date: 20100416
  Transmission Date: 20110219
  Serious: No
  Sender: FDA-Public Use
  Company Number: US-ALLERGAN-1005025US

PATIENT
  Age: 43 Year
  Sex: Female

DRUGS (2)
  1. LATISSE [Suspect]
     Indication: GROWTH OF EYELASHES
     Dosage: 1 GTT, QHS
     Route: 061
     Dates: start: 20091031
  2. MINOCYCLINE [Concomitant]
     Indication: ACNE

REACTIONS (2)
  - APPLICATION SITE PRURITUS [None]
  - DRUG INEFFECTIVE [None]
